FAERS Safety Report 23058281 (Version 1)
Quarter: 2023Q4

REPORT INFORMATION
  Report Type: Spontaneous
  Country: US (occurrence: None)
  Receive Date: 20231011
  Receipt Date: 20231011
  Transmission Date: 20240109
  Serious: Yes (Other)
  Sender: FDA-Public Use
  Company Number: None

PATIENT
  Age: 28 Year
  Sex: Male
  Weight: 87.75 kg

DRUGS (4)
  1. FINASTERIDE [Suspect]
     Active Substance: FINASTERIDE
     Indication: Androgenetic alopecia
     Dosage: OTHER QUANTITY : 1 TABLET(S);?OTHER FREQUENCY : 3X/WEEK (MWF);?
     Route: 048
     Dates: start: 20220319, end: 20220618
  2. CLOMID [Concomitant]
     Active Substance: CLOMIPHENE CITRATE
  3. CIALIS [Concomitant]
     Active Substance: TADALAFIL
  4. VITAMIN D [Concomitant]
     Active Substance: VITAMIN D NOS

REACTIONS (4)
  - Erectile dysfunction [None]
  - Libido decreased [None]
  - Penile size reduced [None]
  - Penis disorder [None]

NARRATIVE: CASE EVENT DATE: 20230625
